FAERS Safety Report 9551065 (Version 1)
Quarter: 2013Q3

REPORT INFORMATION
  Report Type: Spontaneous
  Country: US (occurrence: US)
  Receive Date: 20130925
  Receipt Date: 20130925
  Transmission Date: 20140515
  Serious: Yes (Other)
  Sender: FDA-Public Use
  Company Number: US-AMGEN-USASP2013066545

PATIENT
  Age: 25 Year
  Sex: Female

DRUGS (1)
  1. EPOGEN [Suspect]
     Indication: RENAL FAILURE CHRONIC
     Dosage: UNK
     Route: 065

REACTIONS (3)
  - Renal transplant [Unknown]
  - Transplant rejection [Unknown]
  - Dyspnoea [Unknown]
